FAERS Safety Report 7608310-1 (Version None)
Quarter: 2011Q3

REPORT INFORMATION
  Report Type: 
  Country: None (occurrence: None)
  Receive Date: 20110706
  Receipt Date: 20110623
  Transmission Date: 20111222
  Serious: Yes (Other)
  Sender: FDA-Public Use
  Company Number: AUR-APL-2011-03673

PATIENT
  Age: 28 Year
  Sex: Female
  Weight: 71 kg

DRUGS (9)
  1. FLUOXETINE HYDROCHLORIDE [Concomitant]
  2. CITALOPRAM HYDROBROMIDE [Suspect]
     Indication: PRODUCT USED FOR UNKNOWN INDICATION
     Dates: start: 20110511
  3. MOMETASONE FUROATE [Concomitant]
  4. SERTRALINE HYDROCHLORIDE [Concomitant]
  5. CETIRIZINE HCL [Concomitant]
  6. DOSULEPIN (DOSULEPIN) [Concomitant]
  7. HYDROMOL EMOLLIENT (HYDROMOL /00906601/) [Concomitant]
  8. ALBUTEROL SULFATE [Concomitant]
  9. QVAR [Concomitant]

REACTIONS (2)
  - CONTUSION [None]
  - YAWNING [None]
